FAERS Safety Report 18649857 (Version 10)
Quarter: 2024Q3

REPORT INFORMATION
  Report Type: Spontaneous
  Country: US (occurrence: US)
  Receive Date: 20201222
  Receipt Date: 20240718
  Transmission Date: 20241017
  Serious: Yes (Hospitalization, Other)
  Sender: PFIZER
  Company Number: US-PFIZER INC-2020501195

PATIENT
  Age: 61 Year
  Sex: Female
  Weight: 92 kg

DRUGS (8)
  1. XELJANZ XR [Suspect]
     Active Substance: TOFACITINIB CITRATE
     Indication: Rheumatoid arthritis
     Dosage: 11 MG
     Route: 048
     Dates: start: 20201108
  2. XELJANZ XR [Suspect]
     Active Substance: TOFACITINIB CITRATE
     Dosage: 11 MG
     Route: 048
     Dates: start: 20201116
  3. XELJANZ XR [Suspect]
     Active Substance: TOFACITINIB CITRATE
     Dosage: 11 MG, DAILY
     Route: 048
     Dates: start: 20201123
  4. XELJANZ XR [Suspect]
     Active Substance: TOFACITINIB CITRATE
     Dosage: 11 MG
     Route: 048
     Dates: start: 20210319, end: 20210410
  5. XELJANZ XR [Suspect]
     Active Substance: TOFACITINIB CITRATE
     Dosage: 11 MG, DAILY
     Route: 048
     Dates: start: 202104
  6. XELJANZ XR [Suspect]
     Active Substance: TOFACITINIB CITRATE
     Dosage: 11 MG
     Route: 048
     Dates: start: 202303, end: 202303
  7. VITAMIN D NOS [Concomitant]
     Active Substance: CHOLECALCIFEROL\ERGOCALCIFEROL
     Indication: Vitamin D decreased
     Dosage: 5000 UNITED STATES PHARMACOPOEIA UNIT, 1X/DAY
  8. LISINOPRIL [Concomitant]
     Active Substance: LISINOPRIL
     Indication: Hypertension
     Dosage: 5 MG, 1X/DAY

REACTIONS (23)
  - Bronchitis [Unknown]
  - Respiratory syncytial virus infection [Unknown]
  - Urinary tract infection [Unknown]
  - Abdominal discomfort [Unknown]
  - Chest pain [Unknown]
  - Condition aggravated [Unknown]
  - Contusion [Not Recovered/Not Resolved]
  - Diarrhoea [Recovered/Resolved]
  - Discomfort [Recovered/Resolved]
  - Dyspnoea [Unknown]
  - Epistaxis [Unknown]
  - Headache [Unknown]
  - Inflammation [Unknown]
  - Lipids increased [Unknown]
  - Nasal discomfort [Unknown]
  - Nasal dryness [Unknown]
  - Nausea [Recovered/Resolved]
  - Pain in extremity [Unknown]
  - Phlebitis [Unknown]
  - Blood cholesterol increased [Unknown]
  - Nasopharyngitis [Unknown]
  - Tooth disorder [Unknown]
  - Malaise [Unknown]

NARRATIVE: CASE EVENT DATE: 20200101
